FAERS Safety Report 6886862-7 (Version None)
Quarter: 2010Q3

REPORT INFORMATION
  Report Type: 
  Country: None (occurrence: None)
  Receive Date: 20100729
  Receipt Date: 20100729
  Transmission Date: 20110219
  Serious: Yes (Other)
  Sender: FDA-Public Use
  Company Number: None

PATIENT
  Sex: Female
  Weight: 81.6475 kg

DRUGS (1)
  1. ACETAMINOPHEN [Suspect]
     Indication: PAIN
     Dosage: 3 TABS A DAY MOUTH
     Route: 048
     Dates: start: 20100712, end: 20100712

REACTIONS (1)
  - HAEMORRHAGE [None]
